FAERS Safety Report 8469742-5 (Version None)
Quarter: 2012Q2

REPORT INFORMATION
  Report Type: 
  Country: None (occurrence: None)
  Receive Date: 20120626
  Receipt Date: 20120621
  Transmission Date: 20120825
  Serious: No
  Sender: FDA-Public Use
  Company Number: US-PFIZER INC-2012150647

PATIENT
  Sex: Female
  Weight: 70.295 kg

DRUGS (3)
  1. EFFEXOR XR [Suspect]
     Indication: ANXIETY
  2. EFFEXOR XR [Suspect]
     Indication: DEPRESSION
     Dosage: 300 MG, DAILY
     Dates: start: 19970101, end: 20120620
  3. SYNTHROID [Concomitant]
     Indication: THYROID DISORDER
     Dosage: 0.75 MG, DAILY

REACTIONS (2)
  - PARAESTHESIA [None]
  - HEART RATE INCREASED [None]
